FAERS Safety Report 5679268-X (Version None)
Quarter: 2008Q1

REPORT INFORMATION
  Report Type: 
  Country: None (occurrence: None)
  Receive Date: 20080321
  Receipt Date: 20080310
  Transmission Date: 20080703
  Serious: Yes (Life-Threatening, Hospitalization)
  Sender: FDA-Public Use
  Company Number: RB-9105-2008

PATIENT
  Age: 43 Year
  Sex: Female

DRUGS (8)
  1. SUBUTEX [Suspect]
     Indication: DRUG USE FOR UNKNOWN INDICATION
     Dosage: 8 MG ORAL
     Route: 048
     Dates: end: 20071227
  2. ZYPREXA [Suspect]
     Indication: DRUG USE FOR UNKNOWN INDICATION
     Dosage: 10 MG, 20 MG ORAL
     Route: 048
     Dates: start: 20071127, end: 20071129
  3. ZYPREXA [Suspect]
     Indication: DRUG USE FOR UNKNOWN INDICATION
     Dosage: 10 MG, 20 MG ORAL
     Route: 048
     Dates: start: 20071130, end: 20080104
  4. LOXAPINE [Suspect]
     Indication: DRUG USE FOR UNKNOWN INDICATION
     Dosage: 100 MG ORAL
     Route: 048
     Dates: start: 20071231
  5. TERCIAN(CYAMEMAZINE) [Suspect]
     Indication: DRUG USE FOR UNKNOWN INDICATION
     Dosage: ORAL
     Route: 048
     Dates: start: 20071227, end: 20071231
  6. FLUVOXAMINE MALEATE [Suspect]
     Indication: DRUG USE FOR UNKNOWN INDICATION
     Dosage: 200 MG ORAL
     Route: 048
  7. DEPAKOTE [Suspect]
     Indication: DRUG USE FOR UNKNOWN INDICATION
     Dosage: 1500 MG ORAL
     Route: 048
  8. CLONAZEPAM [Concomitant]

REACTIONS (2)
  - DIABETES MELLITUS [None]
  - SEDATION [None]
